FAERS Safety Report 19481704 (Version 1)
Quarter: 2021Q3

REPORT INFORMATION
  Report Type: Other
  Country: BR (occurrence: BR)
  Receive Date: 20210701
  Receipt Date: 20210701
  Transmission Date: 20211014
  Serious: Yes (Other)
  Sender: FDA-Public Use
  Company Number: BR-ROCHE-2860891

PATIENT
  Sex: Female

DRUGS (3)
  1. XOLAIR [Suspect]
     Active Substance: OMALIZUMAB
     Indication: URTICARIA CHRONIC
     Dosage: UNK
     Route: 058
     Dates: start: 20181107
  2. XOLAIR [Suspect]
     Active Substance: OMALIZUMAB
     Dosage: UNK, QMO (2 AMPOULE OF 150 MG)
     Route: 058
     Dates: end: 202103
  3. XOLAIR [Suspect]
     Active Substance: OMALIZUMAB
     Dosage: UNK, QMO (2 PREFILLED SYRINGES OF 150 MG)
     Route: 058
     Dates: start: 202104

REACTIONS (3)
  - Fatigue [Recovering/Resolving]
  - Pruritus [Recovering/Resolving]
  - Skin discolouration [Recovering/Resolving]

NARRATIVE: CASE EVENT DATE: 202105
